FAERS Safety Report 20111710 (Version 1)
Quarter: 2021Q4

REPORT INFORMATION
  Report Type: Spontaneous
  Country: US (occurrence: US)
  Receive Date: 20211125
  Receipt Date: 20211125
  Transmission Date: 20220303
  Serious: No
  Sender: FDA-Public Use
  Company Number: MIQ-09132021-1164

PATIENT
  Age: 39 Year
  Sex: Male

DRUGS (6)
  1. IVERMECTIN [Suspect]
     Active Substance: IVERMECTIN
     Indication: COVID-19
     Dosage: 15 MG, QD
     Route: 048
     Dates: start: 20210911
  2. ZINC [Concomitant]
     Active Substance: ZINC
     Indication: Product used for unknown indication
     Dosage: UNK
     Route: 065
  3. VITAMIN D NOS [Concomitant]
     Active Substance: VITAMIN D NOS
     Indication: Product used for unknown indication
     Dosage: UNK
     Route: 065
  4. VITAMIN C                          /00008001/ [Concomitant]
     Indication: Product used for unknown indication
     Dosage: UNK
     Route: 065
  5. NAC                                /00082801/ [Concomitant]
     Indication: Product used for unknown indication
     Dosage: UNK
     Route: 065
  6. MELATONIN [Concomitant]
     Active Substance: MELATONIN
     Indication: Product used for unknown indication
     Dosage: UNK
     Route: 065

REACTIONS (1)
  - Therapeutic product effective for unapproved indication [Recovering/Resolving]

NARRATIVE: CASE EVENT DATE: 20210911
